FAERS Safety Report 8615036-4 (Version None)
Quarter: 2012Q3

REPORT INFORMATION
  Report Type: 
  Country: None (occurrence: None)
  Receive Date: 20120823
  Receipt Date: 20120817
  Transmission Date: 20120928
  Serious: Yes (Other)
  Sender: FDA-Public Use
  Company Number: US-PFIZER INC-2012202463

PATIENT
  Age: 57 Year
  Sex: Female
  Weight: 131.52 kg

DRUGS (8)
  1. DEXILANT [Concomitant]
     Dosage: UNK
  2. BUPROPION [Concomitant]
     Dosage: UNK
  3. DICYCLOMINE [Concomitant]
     Dosage: UNK
  4. VITAMIN D [Concomitant]
     Dosage: 50000 IU, WEEKLY
  5. MELOXICAM [Concomitant]
     Dosage: UNK
  6. LYRICA [Suspect]
     Indication: FIBROMYALGIA
     Dosage: 50 MG, 1X/DAY
     Route: 048
     Dates: start: 20120101, end: 20120601
  7. LYRICA [Suspect]
     Dosage: 100 MG, 3X/DAY
     Route: 048
     Dates: start: 20120601
  8. VITAMIN B-12 [Concomitant]
     Dosage: UNK

REACTIONS (8)
  - LIVER FUNCTION TEST ABNORMAL [None]
  - BONE DISORDER [None]
  - DRUG INEFFECTIVE [None]
  - LIVER DISORDER [None]
  - CHEST DISCOMFORT [None]
  - PLEURAL EFFUSION [None]
  - OEDEMA PERIPHERAL [None]
  - WEIGHT INCREASED [None]
